FAERS Safety Report 20702857 (Version 4)
Quarter: 2022Q2

REPORT INFORMATION
  Report Type: Report from Study
  Country: DE (occurrence: DE)
  Receive Date: 20220412
  Receipt Date: 20220520
  Transmission Date: 20220721
  Serious: Yes (Life-Threatening, Hospitalization, Other)
  Sender: FDA-Public Use
  Company Number: DE-BRISTOL-MYERS SQUIBB COMPANY-2022-017894

PATIENT
  Age: 59 Year
  Sex: Male
  Weight: 149 kg

DRUGS (12)
  1. NIVOLUMAB [Suspect]
     Active Substance: NIVOLUMAB
     Indication: Non-small cell lung cancer
     Dosage: MOST RECENT DOSE RECEIVED ON 24-FEB-2022
     Route: 042
     Dates: start: 20211104
  2. CARBOPLATIN [Suspect]
     Active Substance: CARBOPLATIN
     Indication: Non-small cell lung cancer
     Dosage: MOST RECENT DOSE (655 MG) RECEIVED ON 03-FEB-2022
     Route: 065
     Dates: start: 20211104
  3. PACLITAXEL [Suspect]
     Active Substance: PACLITAXEL
     Indication: Non-small cell lung cancer
     Dosage: MOST RECENT DOSE RECEIVED ON 17-FEB-2022
     Route: 065
     Dates: start: 20211104
  4. SITAGLIPTIN [Concomitant]
     Active Substance: SITAGLIPTIN
     Indication: Product used for unknown indication
     Dosage: DAILY; PER DAY?ONGOING
     Route: 048
     Dates: start: 20211125
  5. OLODATEROL HYDROCHLORIDE\TIOTROPIUM BROMIDE MONOHYDRATE [Concomitant]
     Active Substance: OLODATEROL HYDROCHLORIDE\TIOTROPIUM BROMIDE MONOHYDRATE
     Indication: Product used for unknown indication
     Dosage: DAILY; PER DAY?ONGOING
     Route: 055
     Dates: start: 20211013
  6. GRANISETRON [Concomitant]
     Active Substance: GRANISETRON
     Indication: Product used for unknown indication
     Dosage: OCCASIONAL?ONGOING
     Route: 048
     Dates: start: 20211104
  7. METAMIZOLE [Concomitant]
     Active Substance: METAMIZOLE
     Indication: Product used for unknown indication
     Dosage: AS NEEDED?ONGOING
     Route: 048
     Dates: start: 20211019
  8. METFORMIN [Concomitant]
     Active Substance: METFORMIN HYDROCHLORIDE
     Indication: Product used for unknown indication
     Dosage: BD; TWICE PER DAY?ONGOING
     Route: 048
     Dates: start: 20211125
  9. INSULINA HUMALOG [Concomitant]
     Indication: Product used for unknown indication
     Dosage: 1 DF= 2 UNITS NOS?AS NEEDED?ONGOING
     Route: 058
     Dates: start: 20211125
  10. DEXAMETHASONE [Concomitant]
     Active Substance: DEXAMETHASONE
     Indication: Product used for unknown indication
     Dosage: OCCASIONAL?ONGOING
     Route: 048
     Dates: start: 20211104
  11. METOPROLOL [Concomitant]
     Active Substance: METOPROLOL
     Indication: Product used for unknown indication
     Dosage: DAILY; PER DAY
     Route: 048
     Dates: start: 20211107, end: 20220501
  12. METHIMAZOLE [Concomitant]
     Active Substance: METHIMAZOLE
     Indication: Hyperthyroidism
     Dosage: DAILY; PER DAY
     Route: 048
     Dates: start: 20220331, end: 20220501

REACTIONS (1)
  - Acute kidney injury [Recovered/Resolved with Sequelae]

NARRATIVE: CASE EVENT DATE: 20220331
